FAERS Safety Report 8881684 (Version 1)
Quarter: 2012Q4

REPORT INFORMATION
  Report Type: 
  Country: US (occurrence: US)
  Receive Date: 20121101
  Receipt Date: 20121101
  Transmission Date: 20130627
  Serious: No
  Sender: FDA-Public Use
  Company Number: US-PFIZER INC-2012269162

PATIENT
  Age: 76 Year
  Sex: Male
  Weight: 90.7 kg

DRUGS (5)
  1. VIAGRA [Suspect]
     Indication: ERECTILE DYSFUNCTION
     Dosage: 100 mg, as needed
  2. VIAGRA [Suspect]
     Dosage: 100 mg, UNK
  3. ROSUVASTATIN CALCIUM [Concomitant]
     Indication: BLOOD CHOLESTEROL ABNORMAL
     Dosage: 40 mg, daily
  4. OMEPRAZOLE [Concomitant]
     Indication: ACID REFLUX (ESOPHAGEAL)
     Dosage: 20 mg, daily
  5. HUMALOG [Concomitant]
     Indication: DIABETES
     Dosage: UNK, after every three days

REACTIONS (1)
  - Drug ineffective [Unknown]
